FAERS Safety Report 9677852 (Version 3)
Quarter: 2013Q4

REPORT INFORMATION
  Report Type: Report from Study
  Country: CN (occurrence: CN)
  Receive Date: 20131108
  Receipt Date: 20131112
  Transmission Date: 20140711
  Serious: Yes (Hospitalization)
  Sender: FDA-Public Use
  Company Number: CN-B.I. PHARMACEUTICALS,INC./RIDGEFIELD-2013-RU-00323BP

PATIENT
  Age: 64 Year
  Sex: Male
  Weight: 73.3 kg

DRUGS (1)
  1. BI 1744+TIOTROPIUM BROMIDE [Suspect]
     Indication: CHRONIC OBSTRUCTIVE PULMONARY DISEASE
     Dosage: FDC 5MCG TIOTROPIUM BROMIDE + 5MCG OLODATEROL
     Route: 055
     Dates: start: 20121008

REACTIONS (1)
  - Chronic obstructive pulmonary disease [Recovered/Resolved]
